FAERS Safety Report 19483701 (Version 1)
Quarter: 2021Q3

REPORT INFORMATION
  Report Type: Spontaneous
  Country: US (occurrence: US)
  Receive Date: 20210701
  Receipt Date: 20210701
  Transmission Date: 20211014
  Serious: No
  Sender: FDA-Public Use
  Company Number: US-ROCHE-2795055

PATIENT
  Age: 23 Year
  Sex: Male
  Weight: 78.93 kg

DRUGS (1)
  1. CLONAZEPAM. [Suspect]
     Active Substance: CLONAZEPAM
     Indication: PRODUCT USED FOR UNKNOWN INDICATION
     Dosage: DELTOID, LEFT ? ADMINISTERED AT ABOUT 9:30 AM (FIRST DOSE)
     Route: 065
     Dates: start: 20210316

REACTIONS (11)
  - Malaise [Not Recovered/Not Resolved]
  - Heart rate increased [Recovering/Resolving]
  - Hypertension [Unknown]
  - Diarrhoea [Recovering/Resolving]
  - Abdominal pain upper [Unknown]
  - Insomnia [Unknown]
  - Pyrexia [Unknown]
  - Muscle spasms [Unknown]
  - Limb discomfort [Not Recovered/Not Resolved]
  - Dry eye [Recovering/Resolving]
  - Confusional state [Not Recovered/Not Resolved]

NARRATIVE: CASE EVENT DATE: 20210316
